FAERS Safety Report 11697288 (Version 2)
Quarter: 2015Q4

REPORT INFORMATION
  Report Type: Report from Study
  Country: FR (occurrence: FR)
  Receive Date: 20151104
  Receipt Date: 20151216
  Transmission Date: 20160304
  Serious: Yes (Hospitalization, Other)
  Sender: FDA-Public Use
  Company Number: FR-BRISTOL-MYERS SQUIBB COMPANY-BMS-2015-073438

PATIENT
  Age: 55 Year
  Sex: Male
  Weight: 70 kg

DRUGS (3)
  1. DACLATASVIR DIHYDROCHLORIDE [Suspect]
     Active Substance: DACLATASVIR DIHYDROCHLORIDE
     Indication: HEPATITIS C VIRUS TEST
     Dosage: 60 MG, QD
     Route: 048
     Dates: start: 20141018, end: 20150409
  2. SOFOSBUVIR [Concomitant]
     Active Substance: SOFOSBUVIR
     Indication: HEPATITIS C VIRUS TEST
     Dosage: 400 MG, QD
     Route: 048
     Dates: start: 20141018, end: 20150409
  3. METFORMIN [Concomitant]
     Active Substance: METFORMIN HYDROCHLORIDE
     Indication: TYPE 2 DIABETES MELLITUS
     Dosage: 850 MG, BID
     Route: 065

REACTIONS (9)
  - Hepatocellular carcinoma [Recovered/Resolved]
  - Bacterial diarrhoea [Recovered/Resolved]
  - Liver operation [Recovered/Resolved]
  - Arterial injury [Recovering/Resolving]
  - Biliary fistula [Recovering/Resolving]
  - Cholangitis [Unknown]
  - Liver transplant [Unknown]
  - Escherichia sepsis [Recovered/Resolved]
  - Transplant abscess [Recovering/Resolving]

NARRATIVE: CASE EVENT DATE: 201412
